FAERS Safety Report 24554339 (Version 1)
Quarter: 2024Q4

REPORT INFORMATION
  Report Type: Spontaneous
  Country: US (occurrence: US)
  Receive Date: 20241028
  Receipt Date: 20241028
  Transmission Date: 20250115
  Serious: Yes (Other)
  Sender: APOTEX
  Company Number: US-APOTEX-2024AP012807

PATIENT
  Age: 41 Year
  Sex: Female

DRUGS (1)
  1. OMEPRAZOLE [Suspect]
     Active Substance: OMEPRAZOLE
     Indication: Product used for unknown indication
     Dosage: UNK
     Route: 065

REACTIONS (10)
  - Cholangitis sclerosing [Unknown]
  - Porphyria non-acute [Unknown]
  - Hyperbilirubinaemia [Unknown]
  - Leukopenia [Unknown]
  - Drug-induced liver injury [Unknown]
  - Normocytic anaemia [Unknown]
  - Fibrosis [Unknown]
  - Liver disorder [Unknown]
  - Infection [Unknown]
  - Hepatic enzyme increased [Unknown]
